FAERS Safety Report 21824798 (Version 5)
Quarter: 2023Q1

REPORT INFORMATION
  Report Type: Report from Study
  Country: US (occurrence: US)
  Receive Date: 20230105
  Receipt Date: 20230314
  Transmission Date: 20230418
  Serious: Yes (Hospitalization, Other)
  Sender: FDA-Public Use
  Company Number: US-002147023-NVSC2023US001934

PATIENT
  Age: 56 Year
  Sex: Female

DRUGS (1)
  1. KESIMPTA [Suspect]
     Active Substance: OFATUMUMAB
     Indication: Multiple sclerosis
     Dosage: 20 MG, QMO
     Route: 058
     Dates: start: 20230101, end: 20230102

REACTIONS (11)
  - Influenza [Unknown]
  - Headache [Unknown]
  - Chills [Unknown]
  - Mobility decreased [Unknown]
  - Musculoskeletal stiffness [Unknown]
  - Dyspnoea [Unknown]
  - Muscle spasms [Unknown]
  - Muscle spasticity [Unknown]
  - Pain [Unknown]
  - Anxiety [Unknown]
  - Agitation [Unknown]

NARRATIVE: CASE EVENT DATE: 20230101
